FAERS Safety Report 18887417 (Version 3)
Quarter: 2021Q1

REPORT INFORMATION
  Report Type: Spontaneous
  Country: FR (occurrence: FR)
  Receive Date: 20210212
  Receipt Date: 20210226
  Transmission Date: 20210420
  Serious: Yes (Hospitalization)
  Sender: FDA-Public Use
  Company Number: FR-PFIZER INC-2021114608

PATIENT
  Age: 81 Year
  Sex: Male
  Weight: 70 kg

DRUGS (13)
  1. ROPINIROLE. [Suspect]
     Active Substance: ROPINIROLE
     Indication: PARKINSON^S DISEASE
     Dosage: 1.5 MG, 3X/DAY
  2. PRAVASTATIN. [Suspect]
     Active Substance: PRAVASTATIN
     Indication: HYPERCHOLESTEROLAEMIA
     Dosage: 40 MG, DAILY
  3. CALCIUM [Suspect]
     Active Substance: CALCIUM
     Dosage: 1 G, DAILY
  4. MACROGOL 3350 [Suspect]
     Active Substance: POLYETHYLENE GLYCOL 3350
     Indication: CONSTIPATION
     Dosage: 1 DF, DAILY
  5. TRINITRINE [Suspect]
     Active Substance: NITROGLYCERIN
     Indication: CORONARY ARTERY DISEASE
     Dosage: 10 MG, 1X/DAY
     Route: 062
  6. ESCITALOPRAM [Suspect]
     Active Substance: ESCITALOPRAM OXALATE
     Indication: DEPRESSION
     Dosage: 20 MG, DAILY
  7. FUROSEMIDE. [Suspect]
     Active Substance: FUROSEMIDE
     Indication: HYPERTENSION
     Dosage: 20 MG, DAILY
  8. DONEPEZIL HCL [Suspect]
     Active Substance: DONEPEZIL HYDROCHLORIDE
     Indication: DEMENTIA ALZHEIMER^S TYPE
     Dosage: 10 MG, DAILY
  9. VITAMIN D NOS [Suspect]
     Active Substance: VITAMIN D NOS
     Dosage: 800 IU, DAILY
  10. IRON [Suspect]
     Active Substance: IRON
     Indication: ANAEMIA
     Dosage: 11 G / DL
  11. ALFUZOSIN [Suspect]
     Active Substance: ALFUZOSIN
     Indication: PROSTATIC ADENOMA
     Dosage: 10 MG, 1X/DAY
  12. CLOPIDOGREL [Suspect]
     Active Substance: CLOPIDOGREL BISULFATE
     Indication: CORONARY ARTERY DISEASE
     Dosage: 75 MG, DAILY
  13. AMLODIPINE [Suspect]
     Active Substance: AMLODIPINE BESYLATE
     Indication: HYPERTENSION
     Dosage: 5 MG, DAILY

REACTIONS (6)
  - Hypokalaemia [Unknown]
  - Fall [Unknown]
  - Behaviour disorder [Unknown]
  - Malaise [Unknown]
  - Dizziness postural [Unknown]
  - Myalgia [Unknown]
